FAERS Safety Report 6920437-6 (Version None)
Quarter: 2010Q3

REPORT INFORMATION
  Report Type: 
  Country: None (occurrence: None)
  Receive Date: 20100812
  Receipt Date: 20100802
  Transmission Date: 20110219
  Serious: Yes (Hospitalization)
  Sender: FDA-Public Use
  Company Number: US-BIOGENIDEC-2010BI025406

PATIENT
  Sex: Female

DRUGS (2)
  1. AVONEX [Suspect]
     Indication: MULTIPLE SCLEROSIS
     Route: 030
     Dates: start: 20000301, end: 20010101
  2. AVONEX [Suspect]
     Route: 030
     Dates: start: 20080423

REACTIONS (3)
  - CYSTITIS [None]
  - DEHYDRATION [None]
  - HYPERTENSION [None]
